FAERS Safety Report 4406363-5 (Version None)
Quarter: 2004Q3

REPORT INFORMATION
  Report Type: 
  Country: None (occurrence: None)
  Receive Date: 20040723
  Receipt Date: 20030707
  Transmission Date: 20050211
  Serious: No
  Sender: FDA-Public Use
  Company Number: US-GLAXOSMITHKLINE-A0415570A

PATIENT
  Age: 66 Year
  Sex: Male

DRUGS (7)
  1. AVANDIA [Suspect]
     Dosage: 8MG PER DAY
     Route: 048
     Dates: start: 20030521
  2. COZAAR [Concomitant]
     Route: 048
     Dates: start: 20030101
  3. TRIAMTERENE AND HYDROCHLOROTHIAZIDE [Concomitant]
  4. TIAZAC [Concomitant]
  5. ASPIRIN [Concomitant]
  6. XALATAN [Concomitant]
  7. GEMFIBROZIL [Concomitant]

REACTIONS (1)
  - FLATULENCE [None]
